FAERS Safety Report 11658136 (Version 6)
Quarter: 2016Q1

REPORT INFORMATION
  Report Type: Report from Study
  Country: US (occurrence: US)
  Receive Date: 20151024
  Receipt Date: 20160107
  Transmission Date: 20160525
  Serious: No
  Sender: FDA-Public Use
  Company Number: US-AMGEN-USASL2015109062

PATIENT
  Age: 59 Year
  Sex: Female

DRUGS (2)
  1. ENBREL [Suspect]
     Active Substance: ETANERCEPT
     Dosage: 50 MG, UNK
     Route: 065
     Dates: start: 20151015
  2. ENBREL [Suspect]
     Active Substance: ETANERCEPT
     Indication: RHEUMATOID ARTHRITIS
     Dosage: 50 MG, QWK
     Route: 065
     Dates: start: 201508, end: 2015

REACTIONS (8)
  - Ocular hyperaemia [Unknown]
  - Anxiety [Not Recovered/Not Resolved]
  - Injection site vesicles [Unknown]
  - Dizziness [Unknown]
  - Thyroid mass [Unknown]
  - Blister [Unknown]
  - Eye irritation [Unknown]
  - Eye infection [Unknown]

NARRATIVE: CASE EVENT DATE: 2015
